FAERS Safety Report 24288892 (Version 3)
Quarter: 2024Q4

REPORT INFORMATION
  Report Type: Spontaneous
  Country: JP (occurrence: JP)
  Receive Date: 20240906
  Receipt Date: 20241222
  Transmission Date: 20250115
  Serious: Yes (Other)
  Sender: ALEXION PHARMACEUTICALS
  Company Number: 2024A199962

PATIENT
  Age: 64 Year

DRUGS (6)
  1. IMFINZI [Suspect]
     Active Substance: DURVALUMAB
     Indication: Non-small cell lung cancer
  2. IMFINZI [Suspect]
     Active Substance: DURVALUMAB
     Route: 041
  3. IMFINZI [Suspect]
     Active Substance: DURVALUMAB
  4. IMFINZI [Suspect]
     Active Substance: DURVALUMAB
     Route: 041
  5. HEPARIN CALCIUM [Concomitant]
     Active Substance: HEPARIN CALCIUM
     Dosage: DOSE UNKNOWN
     Route: 058
  6. HEPARIN CALCIUM [Concomitant]
     Active Substance: HEPARIN CALCIUM
     Dosage: DOSE UNKNOWN

REACTIONS (3)
  - Radiation pneumonitis [Recovering/Resolving]
  - Organising pneumonia [Recovering/Resolving]
  - Anaemia [Recovering/Resolving]
